FAERS Safety Report 22088283 (Version 2)
Quarter: 2024Q3

REPORT INFORMATION
  Report Type: Report from Study
  Country: US (occurrence: US)
  Receive Date: 20230313
  Receipt Date: 20240818
  Transmission Date: 20241016
  Serious: No
  Sender: ROCHE
  Company Number: US-ROCHE-3302444

PATIENT
  Age: 40 Year
  Sex: Female
  Weight: 47.63 kg

DRUGS (9)
  1. OCREVUS [Suspect]
     Active Substance: OCRELIZUMAB
     Indication: Primary progressive multiple sclerosis
     Route: 042
     Dates: start: 2019
  2. OCREVUS [Suspect]
     Active Substance: OCRELIZUMAB
     Route: 042
     Dates: start: 20200312, end: 20210128
  3. ZANAFLEX [Concomitant]
     Active Substance: TIZANIDINE HYDROCHLORIDE
     Dosage: 1 TABLET EVERY 8 HOURS AS NEEDED
     Route: 048
  4. GABAPENTIN [Concomitant]
     Active Substance: GABAPENTIN
     Indication: Fibromyalgia
     Dosage: 200 MG, 2 IN 1 DAY,?UP TO THREE TIMES A DAY AS NEEDED
     Route: 048
     Dates: start: 2021
  5. GABAPENTIN [Concomitant]
     Active Substance: GABAPENTIN
     Indication: Arthralgia
     Dosage: 200 MG, 2 IN 1 DAY,?UP TO THREE TIMES A DAY AS NEEDED
     Route: 048
     Dates: start: 2021
  6. CYMBALTA [Concomitant]
     Active Substance: DULOXETINE HYDROCHLORIDE
     Indication: Arthralgia
     Route: 048
     Dates: start: 2021
  7. TYLENOL [Concomitant]
     Active Substance: ACETAMINOPHEN
     Route: 048
  8. IBUPROFEN [Concomitant]
     Active Substance: IBUPROFEN
     Route: 048
  9. TIZANIDINE [Concomitant]
     Active Substance: TIZANIDINE
     Dosage: ONCE EVERY 8 HOURS AS NEEDED
     Route: 048
     Dates: start: 2016

REACTIONS (7)
  - Arthralgia [Not Recovered/Not Resolved]
  - Fatigue [Not Recovered/Not Resolved]
  - Pain in extremity [Not Recovered/Not Resolved]
  - COVID-19 [Recovered/Resolved]
  - Fibromyalgia [Not Recovered/Not Resolved]
  - Pyrexia [Not Recovered/Not Resolved]
  - Off label use [Unknown]

NARRATIVE: CASE EVENT DATE: 20200101
